FAERS Safety Report 22230641 (Version 1)
Quarter: 2023Q2

REPORT INFORMATION
  Report Type: Spontaneous
  Country: FR (occurrence: FR)
  Receive Date: 20230420
  Receipt Date: 20230420
  Transmission Date: 20230722
  Serious: Yes (Life-Threatening, Other)
  Sender: FDA-Public Use
  Company Number: None

PATIENT
  Age: 43 Year
  Sex: Male

DRUGS (4)
  1. ELIQUIS [Suspect]
     Active Substance: APIXABAN
     Indication: Plasma cell myeloma
     Dosage: FREQUENCY TIME: 12 HOUR
     Route: 048
     Dates: start: 202212, end: 20230404
  2. MOZOBIL [Suspect]
     Active Substance: PLERIXAFOR
     Indication: Peripheral blood stem cell apheresis
     Route: 058
     Dates: start: 20230403, end: 20230404
  3. FILGRASTIM [Suspect]
     Active Substance: FILGRASTIM
     Indication: Peripheral blood stem cell apheresis
     Route: 058
     Dates: start: 20230330, end: 20230402
  4. FILGRASTIM [Suspect]
     Active Substance: FILGRASTIM
     Indication: Peripheral blood stem cell apheresis
     Route: 058
     Dates: start: 20230402, end: 20230404

REACTIONS (2)
  - Splenic rupture [Recovered/Resolved]
  - Off label use [Unknown]

NARRATIVE: CASE EVENT DATE: 20230404
